FAERS Safety Report 13813714 (Version 1)
Quarter: 2017Q3

REPORT INFORMATION
  Report Type: Spontaneous
  Country: HR (occurrence: HR)
  Receive Date: 20170731
  Receipt Date: 20170731
  Transmission Date: 20171127
  Serious: Yes (Other)
  Sender: FDA-Public Use
  Company Number: HR-AMGEN-HRVSP2017113163

PATIENT
  Sex: Male

DRUGS (1)
  1. PANITUMUMAB [Suspect]
     Active Substance: PANITUMUMAB
     Indication: PRODUCT USED FOR UNKNOWN INDICATION
     Dosage: UNK
     Route: 065
     Dates: start: 2016

REACTIONS (6)
  - Dry eye [Unknown]
  - Dermatitis acneiform [Recovering/Resolving]
  - Bipolar disorder [Not Recovered/Not Resolved]
  - Conjunctivitis [Unknown]
  - Dry skin [Recovering/Resolving]
  - Growth of eyelashes [Unknown]

NARRATIVE: CASE EVENT DATE: 2016
